FAERS Safety Report 20973345 (Version 1)
Quarter: 2022Q2

REPORT INFORMATION
  Report Type: Spontaneous
  Country: CA (occurrence: CA)
  Receive Date: 20220617
  Receipt Date: 20220617
  Transmission Date: 20220721
  Serious: Yes (Other)
  Sender: FDA-Public Use
  Company Number: CA-CELLTRION INC.-2022CA007525

PATIENT

DRUGS (5)
  1. INFLECTRA [Suspect]
     Active Substance: INFLIXIMAB-DYYB
     Indication: Colitis ulcerative
     Dosage: 600 MG, (WEEK0 (28FEB2022) WAS HOSPITAL INFUSION), 2,6 WEEKS, THEN EVERY 8 WEEKS)
     Route: 042
     Dates: start: 20220228
  2. INFLECTRA [Suspect]
     Active Substance: INFLIXIMAB-DYYB
     Dosage: 600 MG, (WEEK0 (28FEB2022) WAS HOSPITAL INFUSION), 2,6 WEEKS, THEN EVERY 8 WEEKS)
     Route: 042
     Dates: start: 20220314
  3. INFLECTRA [Suspect]
     Active Substance: INFLIXIMAB-DYYB
     Dosage: 600 MG, (WEEK0 (28FEB2022) WAS HOSPITAL INFUSION), 2,6 WEEKS, THEN EVERY 8 WEEKS)
     Route: 042
     Dates: start: 20220412
  4. INFLECTRA [Suspect]
     Active Substance: INFLIXIMAB-DYYB
     Dosage: 600 MG, (WEEK0 (28FEB2022) WAS HOSPITAL INFUSION), 2,6 WEEKS, THEN EVERY 8 WEEKS)
     Route: 042
     Dates: start: 20220607
  5. PREDNISONE [Concomitant]
     Active Substance: PREDNISONE
     Dosage: 40 MG, (TAPERING)
     Route: 065
     Dates: start: 20220227

REACTIONS (4)
  - Weight decreased [Unknown]
  - Weight increased [Not Recovered/Not Resolved]
  - Off label use [Unknown]
  - Intentional product use issue [Unknown]

NARRATIVE: CASE EVENT DATE: 20220101
